FAERS Safety Report 5338313-1 (Version None)
Quarter: 2007Q2

REPORT INFORMATION
  Report Type: 
  Country: None (occurrence: None)
  Receive Date: 20070405
  Receipt Date: 20061116
  Transmission Date: 20071010
  Serious: No
  Sender: FDA-Public Use
  Company Number: US200611003886

PATIENT
  Age: 65 Year
  Sex: Female

DRUGS (1)
  1. CYMBALTA [Suspect]
     Dosage: 60MG
     Dates: start: 20060101, end: 20060101

REACTIONS (1)
  - HERPES ZOSTER [None]
